FAERS Safety Report 4862856-8 (Version None)
Quarter: 2005Q4

REPORT INFORMATION
  Report Type: 
  Country: None (occurrence: None)
  Receive Date: 20051221
  Receipt Date: 20050912
  Transmission Date: 20060501
  Serious: Yes (Hospitalization)
  Sender: FDA-Public Use
  Company Number: HQWYE461914SEP05

PATIENT
  Sex: Female

DRUGS (6)
  1. ENBREL [Suspect]
     Indication: RHEUMATOID ARTHRITIS
     Route: 058
     Dates: start: 20050422, end: 20050906
  2. AZULFIDINE [Concomitant]
     Indication: RHEUMATOID ARTHRITIS
     Dosage: UNKNOWN
     Route: 048
     Dates: start: 20041022, end: 20050908
  3. PREDNISOLONE [Concomitant]
     Dates: end: 20050908
  4. ZANTAC [Concomitant]
     Dates: end: 20050908
  5. PRAVASTATIN SODIUM [Concomitant]
     Dates: end: 20050908
  6. UNSPECIFIED MEDICATION [Concomitant]
     Dates: end: 20050908

REACTIONS (3)
  - ANAEMIA [None]
  - APLASIA PURE RED CELL [None]
  - ERYTHROPENIA [None]
